FAERS Safety Report 8159781-6 (Version None)
Quarter: 2012Q1

REPORT INFORMATION
  Report Type: 
  Country: None (occurrence: None)
  Receive Date: 20120223
  Receipt Date: 20120213
  Transmission Date: 20120608
  Serious: Yes (Death, Hospitalization)
  Sender: FDA-Public Use
  Company Number: FR-ACTELION-A-CH2010-39077

PATIENT
  Sex: Male
  Weight: 80 kg

DRUGS (6)
  1. REVATIO [Concomitant]
  2. PREVISCAN [Concomitant]
  3. TRACLEER [Suspect]
     Dosage: 62.5 MG, BID
     Route: 048
     Dates: start: 20060801, end: 20070301
  4. LASIX [Concomitant]
  5. TRACLEER [Suspect]
     Indication: PULMONARY HYPERTENSION
     Dosage: 125 MG, BID
     Route: 048
     Dates: start: 20070301, end: 20100813
  6. ALDACTONE [Concomitant]

REACTIONS (18)
  - CARDIOGENIC SHOCK [None]
  - CIRCULATORY COLLAPSE [None]
  - HYPOVOLAEMIA [None]
  - CARDIOVERSION [None]
  - CYTOLYTIC HEPATITIS [None]
  - DIARRHOEA [None]
  - MECHANICAL VENTILATION [None]
  - JAUNDICE [None]
  - CHOLESTASIS [None]
  - RESPIRATORY FAILURE [None]
  - RHABDOMYOLYSIS [None]
  - ARRHYTHMIA SUPRAVENTRICULAR [None]
  - DYSPNOEA [None]
  - INTERNATIONAL NORMALISED RATIO INCREASED [None]
  - RIGHT VENTRICULAR FAILURE [None]
  - TRANSAMINASES INCREASED [None]
  - BLOOD BILIRUBIN INCREASED [None]
  - RENAL FAILURE ACUTE [None]
